FAERS Safety Report 13356755 (Version 3)
Quarter: 2017Q2

REPORT INFORMATION
  Report Type: Spontaneous
  Country: US (occurrence: US)
  Receive Date: 20170321
  Receipt Date: 20170418
  Transmission Date: 20170830
  Serious: Yes (Other)
  Sender: FDA-Public Use
  Company Number: US-GILEAD-2017-0260326

PATIENT
  Age: 63 Year
  Sex: Male
  Weight: 101.13 kg

DRUGS (2)
  1. HARVONI [Suspect]
     Active Substance: LEDIPASVIR\SOFOSBUVIR
     Indication: CHRONIC HEPATITIS C
     Dosage: UNK
     Route: 065
     Dates: start: 20150106
  2. INSULIN                            /00646001/ [Concomitant]
     Active Substance: INSULIN NOS

REACTIONS (6)
  - Hepatitis C [Unknown]
  - Treatment failure [Unknown]
  - Drug resistance [Unknown]
  - Forearm fracture [Recovered/Resolved]
  - Fall [Recovered/Resolved]
  - Wrist fracture [Recovered/Resolved]

NARRATIVE: CASE EVENT DATE: 201501
